FAERS Safety Report 9626810 (Version 3)
Quarter: 2013Q4

REPORT INFORMATION
  Report Type: Spontaneous
  Country: JP (occurrence: JP)
  Receive Date: 20131016
  Receipt Date: 20131023
  Transmission Date: 20140711
  Serious: Yes (Hospitalization)
  Sender: FDA-Public Use
  Company Number: JP-ASTRAZENECA-2013SE69825

PATIENT
  Age: 28875 Day
  Sex: Female

DRUGS (11)
  1. NEXIUM [Suspect]
     Indication: GASTROOESOPHAGEAL REFLUX DISEASE
     Route: 048
     Dates: start: 20130810, end: 20130906
  2. METHYCOBAL [Concomitant]
     Route: 048
     Dates: start: 20130810
  3. SELBEX [Concomitant]
     Route: 048
     Dates: start: 20130810
  4. STAYBLA [Concomitant]
     Route: 048
     Dates: start: 20130810
  5. JUZENTAIHOTO [Concomitant]
     Route: 048
     Dates: start: 20130810
  6. SELTOUCH [Concomitant]
     Route: 062
     Dates: start: 20130810
  7. PREDONINE [Concomitant]
     Route: 048
     Dates: start: 20130810
  8. RIMATIL [Concomitant]
     Route: 048
     Dates: start: 20130810
  9. PREDNISOLONE [Concomitant]
     Route: 048
     Dates: start: 20130810
  10. BENET [Concomitant]
     Route: 048
     Dates: start: 20130810, end: 20130906
  11. LOXONIN [Concomitant]
     Route: 048
     Dates: start: 20130810

REACTIONS (7)
  - Spinal compression fracture [Unknown]
  - Spinal compression fracture [Unknown]
  - Hyponatraemia [Unknown]
  - Activities of daily living impaired [Unknown]
  - Muscular weakness [Unknown]
  - Hypocalcaemia [Unknown]
  - Therapy cessation [Unknown]
